FAERS Safety Report 5201197-6 (Version None)
Quarter: 2007Q1

REPORT INFORMATION
  Report Type: 
  Country: None (occurrence: None)
  Receive Date: 20070103
  Receipt Date: 20061214
  Transmission Date: 20070707
  Serious: Yes (Hospitalization)
  Sender: FDA-Public Use
  Company Number: 15390

PATIENT
  Age: 72 Year
  Sex: Male
  Weight: 100 kg

DRUGS (13)
  1. DACARBAZINE [Suspect]
     Indication: MALIGNANT MELANOMA STAGE IV
     Dosage: 2100 MG Q3W IV
     Route: 042
     Dates: start: 20061024
  2. DACARBAZINE [Suspect]
     Indication: MALIGNANT MELANOMA STAGE IV
     Dosage: 1600 MG IV
     Route: 042
     Dates: start: 20061121
  3. BOSENTAN 500 MG BID OR PLACEBO (CODE NOT BROKEN) [Suspect]
     Indication: MALIGNANT MELANOMA STAGE IV
     Dosage: 500 MG BID PO
     Route: 048
     Dates: start: 20061024
  4. ONDANSETRON [Concomitant]
  5. DEXAMETHASONE [Concomitant]
  6. OMEPRAZOLE [Concomitant]
  7. DURAGESIC-100 [Concomitant]
  8. OXYCODONE HCL [Concomitant]
  9. RAMIPRIL [Concomitant]
  10. SERETIDE [Concomitant]
  11. PARACETAMOL [Concomitant]
  12. MOCLOBEMIDE [Concomitant]
  13. PARAFFIN [Concomitant]

REACTIONS (3)
  - INFLUENZA LIKE ILLNESS [None]
  - PYREXIA [None]
  - UPPER RESPIRATORY TRACT INFECTION [None]
